FAERS Safety Report 4776289-6 (Version None)
Quarter: 2005Q3

REPORT INFORMATION
  Report Type: 
  Country: None (occurrence: None)
  Receive Date: 20050922
  Receipt Date: 20050914
  Transmission Date: 20060218
  Serious: Yes (Other)
  Sender: FDA-Public Use
  Company Number: PHRM2005FR02480

PATIENT
  Sex: Female

DRUGS (1)
  1. ZOMETA [Suspect]
     Route: 042

REACTIONS (3)
  - ASEPTIC NECROSIS BONE [None]
  - JAW DISORDER [None]
  - OSTEONECROSIS [None]
